FAERS Safety Report 14625855 (Version 2)
Quarter: 2018Q1

REPORT INFORMATION
  Report Type: Report from Study
  Country: None (occurrence: US)
  Receive Date: 20180312
  Receipt Date: 20180320
  Transmission Date: 20180509
  Serious: Yes (Hospitalization, Other)
  Sender: FDA-Public Use
  Company Number: US-ABBVIE-18K-163-2218164-00

PATIENT
  Age: 65 Year
  Sex: Female
  Weight: 77.18 kg

DRUGS (24)
  1. HUMIRA [Suspect]
     Active Substance: ADALIMUMAB
     Route: 058
     Dates: start: 2017, end: 201704
  2. FAMOTIDINE. [Concomitant]
     Active Substance: FAMOTIDINE
     Indication: PRODUCT USED FOR UNKNOWN INDICATION
     Dosage: BEDTIME
     Route: 048
     Dates: start: 20180208
  3. METFORMIN HYDROCHLORIDE ER [Concomitant]
     Active Substance: METFORMIN HYDROCHLORIDE
     Indication: PRODUCT USED FOR UNKNOWN INDICATION
     Dosage: EXTENDED RELEASE 24 HOUR, WITH MEALS
     Route: 048
     Dates: start: 20170510
  4. PROAIR HFA/ACT [Concomitant]
     Indication: PRODUCT USED FOR UNKNOWN INDICATION
     Dosage: 108 (90 BASE) MCG AEROSOL SOLUTION?INHALE 1 TO 2 PUFFS EVERY 6 HOURS
     Dates: start: 20130308
  5. XARELTO [Concomitant]
     Active Substance: RIVAROXABAN
     Indication: PRODUCT USED FOR UNKNOWN INDICATION
     Dosage: BY MOUTH?IN AFTERNOON
     Route: 048
     Dates: start: 20160205
  6. AMLODIPINE BESYLATE. [Concomitant]
     Active Substance: AMLODIPINE BESYLATE
     Indication: PRODUCT USED FOR UNKNOWN INDICATION
     Dosage: 90TAB, 90 DAYS
     Route: 048
     Dates: start: 20150925
  7. RANITIDINE HYDROCHLORIDE. [Concomitant]
     Active Substance: RANITIDINE HYDROCHLORIDE
     Indication: PRODUCT USED FOR UNKNOWN INDICATION
     Route: 048
     Dates: start: 20161206
  8. HUMIRA [Suspect]
     Active Substance: ADALIMUMAB
     Indication: RHEUMATOID ARTHRITIS
     Route: 058
     Dates: start: 2009, end: 201701
  9. FLUTICASONE PROPIONATE/ACT [Concomitant]
     Indication: PRODUCT USED FOR UNKNOWN INDICATION
     Dosage: NASAL SUSPENSION, 2 SPRAYS EACH NOSTRIL
     Route: 045
     Dates: start: 20140703
  10. MAGNESIUM OXIDE. [Concomitant]
     Active Substance: MAGNESIUM OXIDE
     Indication: PRODUCT USED FOR UNKNOWN INDICATION
     Route: 048
     Dates: start: 20120909
  11. METOPROLOL SUCCINATE ER [Concomitant]
     Active Substance: METOPROLOL SUCCINATE
     Indication: PRODUCT USED FOR UNKNOWN INDICATION
     Dosage: EXTENDED RELEASE 24 HOUR, BY MOUTH
     Route: 048
     Dates: start: 20120119
  12. LIPITOR [Concomitant]
     Active Substance: ATORVASTATIN CALCIUM
     Indication: PRODUCT USED FOR UNKNOWN INDICATION
     Dosage: 90 DAYS, 90TAB, NIGHT AT BEDTIME
     Route: 048
     Dates: start: 20150917
  13. CEFUROXIME AXETIL. [Concomitant]
     Active Substance: CEFUROXIME AXETIL
     Indication: PRODUCT USED FOR UNKNOWN INDICATION
     Dosage: 20 TABLET, 10DAYS
     Route: 048
  14. DUONEB [Concomitant]
     Active Substance: ALBUTEROL SULFATE\IPRATROPIUM BROMIDE
     Indication: PRODUCT USED FOR UNKNOWN INDICATION
     Dosage: 0.5-2.4 (3) MG/3 ML, 1 VIAL, NEBULIZER
     Dates: start: 20130816
  15. POTASSIUM CHLORIDE ER [Concomitant]
     Active Substance: POTASSIUM CHLORIDE
     Indication: PRODUCT USED FOR UNKNOWN INDICATION
     Dosage: EXTENDED RELEASE,BY MOUTH
     Route: 048
     Dates: start: 20120319
  16. AYR NASAL SOLUTION [Concomitant]
     Indication: PRODUCT USED FOR UNKNOWN INDICATION
     Dosage: USE 2 SPRAYS IN EACH NOSTRIL TWICE DAILY
     Route: 045
     Dates: start: 20180208
  17. BUDESONIDE. [Concomitant]
     Active Substance: BUDESONIDE
     Indication: PRODUCT USED FOR UNKNOWN INDICATION
     Dosage: 0.5 MG/2ML INHALATION SUSPENSION, USE I VIAL VIA NEBULIZER TWICE?DAILY, 15 DAYS
     Dates: start: 20141219
  18. ESCITALOPRAM OXALATE. [Concomitant]
     Active Substance: ESCITALOPRAM OXALATE
     Indication: PRODUCT USED FOR UNKNOWN INDICATION
     Route: 048
     Dates: start: 20170609
  19. PANTOPRAZOLE SODIUM. [Concomitant]
     Active Substance: PANTOPRAZOLE SODIUM
     Indication: PRODUCT USED FOR UNKNOWN INDICATION
     Dosage: DELAYED RELEASE
     Route: 048
     Dates: start: 20170217
  20. PREDNISONE. [Concomitant]
     Active Substance: PREDNISONE
     Indication: PRODUCT USED FOR UNKNOWN INDICATION
     Dosage: BY MOUTH
     Route: 048
     Dates: start: 20140214
  21. ALBUTEROL SULFATE. [Concomitant]
     Active Substance: ALBUTEROL SULFATE
     Indication: PRODUCT USED FOR UNKNOWN INDICATION
     Dosage: 2.5 MG/3ML, 75 NEBU
     Route: 055
     Dates: start: 20170606
  22. FENOFIBRATE. [Concomitant]
     Active Substance: FENOFIBRATE
     Indication: PRODUCT USED FOR UNKNOWN INDICATION
     Route: 048
     Dates: start: 19000101
  23. FOLIC ACID. [Concomitant]
     Active Substance: FOLIC ACID
     Indication: PRODUCT USED FOR UNKNOWN INDICATION
     Dosage: BY MOUTH
     Route: 048
     Dates: start: 19000101
  24. LEVOTHYROXINE SODIUM. [Concomitant]
     Active Substance: LEVOTHYROXINE SODIUM
     Indication: PRODUCT USED FOR UNKNOWN INDICATION
     Dosage: BY MOUTH
     Route: 048
     Dates: start: 20160919

REACTIONS (12)
  - Gait inability [Recovered/Resolved]
  - Cholecystitis infective [Recovered/Resolved]
  - Sepsis [Recovered/Resolved]
  - Asthma [Not Recovered/Not Resolved]
  - Aphasia [Recovered/Resolved]
  - Bile duct obstruction [Recovered/Resolved]
  - Pharyngitis [Unknown]
  - Feeding disorder [Recovered/Resolved]
  - Precancerous cells present [Recovered/Resolved]
  - Polyp [Recovered/Resolved]
  - Cholelithiasis [Recovered/Resolved]
  - Cholelithiasis [Recovered/Resolved]

NARRATIVE: CASE EVENT DATE: 201701
